FAERS Safety Report 8346927-X (Version None)
Quarter: 2012Q2

REPORT INFORMATION
  Report Type: 
  Country: None (occurrence: None)
  Receive Date: 20120509
  Receipt Date: 20120502
  Transmission Date: 20120825
  Serious: Yes (Death, Life-Threatening, Hospitalization, Other)
  Sender: FDA-Public Use
  Company Number: US-SANOFI-AVENTIS-2012SA010691

PATIENT
  Age: 50 Year
  Sex: Male
  Weight: 78.5 kg

DRUGS (15)
  1. ELOXATIN [Suspect]
     Route: 041
     Dates: start: 20110928, end: 20110928
  2. ELOXATIN [Suspect]
     Route: 041
     Dates: start: 20120201, end: 20120201
  3. FLUOROURACIL [Suspect]
  4. LEUCOVORIN CALCIUM [Suspect]
  5. ELOXATIN [Suspect]
     Route: 041
     Dates: start: 20111026, end: 20111026
  6. ELOXATIN [Suspect]
     Route: 041
     Dates: start: 20111012, end: 20111012
  7. ELOXATIN [Suspect]
     Route: 041
     Dates: start: 20120104, end: 20120104
  8. ELOXATIN [Suspect]
     Route: 041
     Dates: start: 20120118, end: 20120118
  9. ELOXATIN [Suspect]
     Route: 041
     Dates: start: 20111221, end: 20111221
  10. ELOXATIN [Suspect]
     Route: 041
     Dates: start: 20111122, end: 20111122
  11. ELOXATIN [Suspect]
     Route: 041
     Dates: start: 20110913, end: 20110913
  12. ELOXATIN [Suspect]
     Route: 041
     Dates: start: 20120212, end: 20120212
  13. ELOXATIN [Suspect]
     Route: 041
     Dates: start: 20111109, end: 20111109
  14. ELOXATIN [Suspect]
     Route: 041
     Dates: start: 20111207, end: 20111207
  15. ALL OTHER THERAPEUTIC PRODUCTS [Suspect]

REACTIONS (7)
  - DYSPNOEA [None]
  - HYPERSENSITIVITY [None]
  - UNEVALUABLE EVENT [None]
  - BRONCHIAL DISORDER [None]
  - OXYGEN SATURATION DECREASED [None]
  - DEATH [None]
  - ACUTE RESPIRATORY DISTRESS SYNDROME [None]
